FAERS Safety Report 9523895 (Version 1)
Quarter: 2013Q3

REPORT INFORMATION
  Report Type: Spontaneous
  Country: US (occurrence: US)
  Receive Date: 20130916
  Receipt Date: 20130916
  Transmission Date: 20140515
  Serious: Yes (Other)
  Sender: FDA-Public Use
  Company Number: US-AMGEN-USASP2013064422

PATIENT
  Age: 55 Year
  Sex: Male
  Weight: 118.37 kg

DRUGS (11)
  1. ENBREL [Suspect]
     Indication: PRODUCT USED FOR UNKNOWN INDICATION
     Dosage: 50 MG, QWK
     Route: 058
  2. NIASPAN [Concomitant]
     Dosage: 1000 ER
  3. LOVASTATIN [Concomitant]
     Dosage: 10 MG, UNK
  4. GABAPENTIN [Concomitant]
     Dosage: 100 MG, UNK
  5. CEPHALEXIN                         /00145501/ [Concomitant]
     Dosage: 250 MG, UNK
  6. BENAZEPRIL [Concomitant]
     Dosage: 20 MG, UNK
  7. LOSARTAN HCT [Concomitant]
     Dosage: 100-12.5 UNK
  8. TOPROL [Concomitant]
     Dosage: 100 MG, UNK
  9. WARFARIN [Concomitant]
     Dosage: 10 MG, UNK
  10. HYDROCODONE [Concomitant]
     Dosage: UNK
  11. BABY ASPIRIN [Concomitant]
     Dosage: 81 MG, UNK

REACTIONS (1)
  - Erysipelas [Unknown]
